FAERS Safety Report 18025240 (Version 2)
Quarter: 2020Q4

REPORT INFORMATION
  Report Type: Spontaneous
  Country: US (occurrence: US)
  Receive Date: 20200715
  Receipt Date: 20201113
  Transmission Date: 20210113
  Serious: No
  Sender: FDA-Public Use
  Company Number: US-PFIZER INC-2020195688

PATIENT
  Sex: Female
  Weight: 62.6 kg

DRUGS (2)
  1. D-MANNOSE [Concomitant]
     Indication: URINARY TRACT INFECTION
     Dosage: UNK
     Dates: start: 2019
  2. PREMARIN [Suspect]
     Active Substance: ESTROGENS, CONJUGATED
     Indication: URINARY TRACT INFECTION
     Dosage: 1 G, WEEKLY  (1 GRAM INTO THE VAGINA ONCE WEEKLY)
     Route: 067
     Dates: start: 2019

REACTIONS (5)
  - Amnesia [Not Recovered/Not Resolved]
  - Off label use [Unknown]
  - Drug effective for unapproved indication [Unknown]
  - Visual impairment [Unknown]
  - Product use in unapproved indication [Unknown]
